FAERS Safety Report 21985903 (Version 2)
Quarter: 2023Q2

REPORT INFORMATION
  Report Type: Report from Study
  Country: US (occurrence: US)
  Receive Date: 20230213
  Receipt Date: 20230630
  Transmission Date: 20230722
  Serious: Yes (Hospitalization, Other)
  Sender: FDA-Public Use
  Company Number: US-GW PHARMA-2023-US-003011

PATIENT
  Sex: Female

DRUGS (32)
  1. EPIDIOLEX [Suspect]
     Active Substance: CANNABIDIOL
     Indication: Epilepsy
     Dosage: 4 MILLILITER, BID
     Route: 048
  2. EPIDIOLEX [Suspect]
     Active Substance: CANNABIDIOL
     Indication: Lennox-Gastaut syndrome
  3. FLONASE ALLERGY RELIEF [Concomitant]
     Active Substance: FLUTICASONE PROPIONATE
  4. MELATONEX [Concomitant]
  5. AMOXICILLIN\CLARITHROMYCIN\ESOMEPRAZOLE [Concomitant]
     Active Substance: AMOXICILLIN\CLARITHROMYCIN\ESOMEPRAZOLE
  6. LORATADINE [Concomitant]
     Active Substance: LORATADINE
  7. KEPPRA XR [Concomitant]
     Active Substance: LEVETIRACETAM
  8. SINGULAIR [Concomitant]
     Active Substance: MONTELUKAST SODIUM
  9. PROBIOTICS NOS [Concomitant]
     Active Substance: PROBIOTICS NOS
  10. VALIUM [Concomitant]
     Active Substance: DIAZEPAM
  11. ERYPED [Concomitant]
     Active Substance: ERYTHROMYCIN ETHYLSUCCINATE
  12. BACLOFEN [Concomitant]
     Active Substance: BACLOFEN
  13. SIMETHICONE (DIMETHICONE) [Concomitant]
     Active Substance: DIMETHICONE
  14. ROBINUL [Concomitant]
     Active Substance: GLYCOPYRROLATE
  15. FYCOMPA [Concomitant]
     Active Substance: PERAMPANEL
  16. MIRALAX [Concomitant]
     Active Substance: POLYETHYLENE GLYCOL 3350
  17. MELOXICAM [Concomitant]
     Active Substance: MELOXICAM
  18. TOBRADEX [Concomitant]
     Active Substance: DEXAMETHASONE\TOBRAMYCIN
  19. TRANSDERM SCOP [Concomitant]
     Active Substance: SCOPOLAMINE
  20. MELATONIN [Concomitant]
     Active Substance: MELATONIN
  21. AQUAPHOR ANTIBIOTIC [Concomitant]
  22. TYLENOL [Concomitant]
     Active Substance: ACETAMINOPHEN
  23. DIHYDROCODEINE PHOSPHATE [Concomitant]
     Active Substance: DIHYDROCODEINE PHOSPHATE
  24. NIZORAL [Concomitant]
     Active Substance: KETOCONAZOLE
  25. ALBUTEROL SULFATE [Concomitant]
     Active Substance: ALBUTEROL SULFATE
  26. SYMBICORT [Concomitant]
     Active Substance: BUDESONIDE\FORMOTEROL FUMARATE DIHYDRATE
  27. NYSTATIN\TRIAMCINOLONE ACETONIDE [Concomitant]
     Active Substance: NYSTATIN\TRIAMCINOLONE ACETONIDE
  28. SALINE HIPERTONICO [Concomitant]
  29. BACTRIM [Concomitant]
     Active Substance: SULFAMETHOXAZOLE\TRIMETHOPRIM
  30. ELOCON [Concomitant]
     Active Substance: MOMETASONE FUROATE
  31. GLYCERIN ADULT [Concomitant]
     Active Substance: GLYCERIN
  32. MINERAL OIL [Concomitant]
     Active Substance: MINERAL OIL

REACTIONS (5)
  - Pneumonia [Unknown]
  - Seizure [Unknown]
  - Anxiety [Unknown]
  - Pain [Unknown]
  - Cerebral disorder [Unknown]
